FAERS Safety Report 10462070 (Version 2)
Quarter: 2014Q3

REPORT INFORMATION
  Report Type: Spontaneous
  Country: US (occurrence: US)
  Receive Date: 20140918
  Receipt Date: 20140918
  Transmission Date: 20150326
  Serious: No
  Sender: FDA-Public Use
  Company Number: US-ALLERGAN-1410009US

PATIENT
  Age: 52 Year
  Sex: Female

DRUGS (4)
  1. VANIQA [Suspect]
     Active Substance: EFLORNITHINE HYDROCHLORIDE
     Dosage: UNK, BID
     Route: 061
     Dates: start: 20140312
  2. MOTRIN [Concomitant]
     Active Substance: IBUPROFEN
     Indication: BACK DISORDER
     Dosage: UNK UNK, PRN
     Route: 048
  3. ZYRTEC [Concomitant]
     Active Substance: CETIRIZINE HYDROCHLORIDE
     Indication: SEASONAL ALLERGY
     Dosage: UNK UNK, QD
     Route: 048
  4. VANIQA [Suspect]
     Active Substance: EFLORNITHINE HYDROCHLORIDE
     Indication: HAIR GROWTH ABNORMAL
     Dosage: UNK, QHS
     Route: 061
     Dates: start: 20140505

REACTIONS (4)
  - Ingrown hair [Not Recovered/Not Resolved]
  - Drug ineffective [Unknown]
  - Secretion discharge [Not Recovered/Not Resolved]
  - Inappropriate schedule of drug administration [Unknown]

NARRATIVE: CASE EVENT DATE: 20140505
